FAERS Safety Report 19578010 (Version 11)
Quarter: 2022Q4

REPORT INFORMATION
  Report Type: Report from Study
  Country: PE (occurrence: None)
  Receive Date: 20210719
  Receipt Date: 20221114
  Transmission Date: 20230113
  Serious: Yes (Hospitalization)
  Sender: FDA-Public Use
  Company Number: PE-ROCHE-2867442

PATIENT
  Age: 48 Year
  Sex: Female
  Weight: 68 kg

DRUGS (23)
  1. PLACEBO [Suspect]
     Active Substance: UNSPECIFIED INGREDIENT
     Indication: Lung adenocarcinoma
     Dosage: DATE OF MOST RECENT DOSE  PRIOR TO AE ON 17/JUN/2021 ON DAY 1 OF EACH 21-DAY CYCLE.
     Route: 042
     Dates: start: 20210212
  2. ATEZOLIZUMAB [Suspect]
     Active Substance: ATEZOLIZUMAB
     Indication: Lung adenocarcinoma
     Dosage: DATE OF MOST RECENT DOSE OF STUDY DRUG ATEZOLIZUMAB OF 1200 MG  PRIOR TO AE 17-JUN-2021 ON DAY 1 OF
     Route: 042
     Dates: start: 20210212
  3. HEPARIN [Concomitant]
     Active Substance: HEPARIN SODIUM
     Indication: Venous thrombosis limb
     Route: 058
     Dates: start: 20210223, end: 20210706
  4. HEPARIN [Concomitant]
     Active Substance: HEPARIN SODIUM
     Route: 058
     Dates: start: 20210707, end: 20210807
  5. CODEINE [Concomitant]
     Active Substance: CODEINE
     Indication: Cough
     Route: 048
     Dates: start: 20210401, end: 20211201
  6. OXYCODONE [Concomitant]
     Active Substance: OXYCODONE
     Indication: Arthralgia
     Route: 048
     Dates: start: 20210401, end: 20220307
  7. METOCLOPRAMIDE [Concomitant]
     Active Substance: METOCLOPRAMIDE
     Indication: Prophylaxis
     Route: 048
     Dates: start: 20210524, end: 20210617
  8. AMITRIPTYLINE [Concomitant]
     Active Substance: AMITRIPTYLINE
     Indication: Pelvic pain
     Route: 048
     Dates: start: 20210524
  9. SCOPOLAMINE [Concomitant]
     Active Substance: SCOPOLAMINE
     Indication: Abdominal pain
     Route: 048
     Dates: start: 20210605, end: 20210619
  10. LOPERAMIDE [Concomitant]
     Active Substance: LOPERAMIDE
     Indication: Diarrhoea
     Route: 048
     Dates: start: 20210605, end: 20210613
  11. DEXAMETHASONE [Concomitant]
     Active Substance: DEXAMETHASONE
     Indication: Vasculitis
     Route: 048
     Dates: start: 20210703, end: 20210707
  12. RANITIDINE [Concomitant]
     Active Substance: RANITIDINE
     Route: 042
     Dates: start: 20210706, end: 20210720
  13. METHYLPREDNISOLONE [Concomitant]
     Active Substance: METHYLPREDNISOLONE
     Indication: Vasculitis
     Route: 042
     Dates: start: 20210708, end: 20210714
  14. MYCOPHENOLIC ACID [Concomitant]
     Active Substance: MYCOPHENOLIC ACID
     Indication: Vasculitis
     Route: 048
     Dates: start: 20210708, end: 20210802
  15. VASOPRESSIN [Concomitant]
     Active Substance: VASOPRESSIN
     Indication: Diabetes insipidus
     Dosage: DOSE: 10 OTHER
     Route: 058
     Dates: start: 20210711, end: 20210715
  16. VASOPRESSIN [Concomitant]
     Active Substance: VASOPRESSIN
     Dosage: 10 OTHER
     Route: 058
     Dates: start: 20210716, end: 20210718
  17. VASOPRESSIN [Concomitant]
     Active Substance: VASOPRESSIN
     Dosage: 10 OTHER
     Route: 058
     Dates: start: 20210718, end: 20210722
  18. CALCIUM GLUCONATE [Concomitant]
     Active Substance: CALCIUM GLUCONATE
     Indication: Hypocalcaemia
     Dosage: DOSE: 1 AMPULE
     Route: 042
     Dates: start: 20210708, end: 20210715
  19. ENOXAPARIN [Concomitant]
     Active Substance: ENOXAPARIN
     Indication: Venous thrombosis limb
     Route: 058
     Dates: start: 20210708
  20. POTASSIUM CHLORIDE [Concomitant]
     Active Substance: POTASSIUM CHLORIDE
     Indication: Diabetes insipidus
     Route: 042
     Dates: start: 20210710, end: 20210719
  21. FUROSEMIDE [Concomitant]
     Active Substance: FUROSEMIDE
     Indication: Oedema peripheral
     Route: 048
     Dates: start: 20210629, end: 20210706
  22. PREDNISONE [Concomitant]
     Active Substance: PREDNISONE
     Indication: Vasculitis
     Route: 048
     Dates: start: 20210715, end: 20210802
  23. ZOLEDRONIC ACID [Concomitant]
     Active Substance: ZOLEDRONIC ACID
     Indication: Metastases to bone
     Route: 042
     Dates: start: 20210617, end: 20210617

REACTIONS (1)
  - Cellulitis [Recovered/Resolved]

NARRATIVE: CASE EVENT DATE: 20210703
